FAERS Safety Report 5646676-2 (Version None)
Quarter: 2008Q1

REPORT INFORMATION
  Report Type: 
  Country: None (occurrence: None)
  Receive Date: 20080303
  Receipt Date: 20080219
  Transmission Date: 20080703
  Serious: Yes (Hospitalization)
  Sender: FDA-Public Use
  Company Number: ES-AMGEN-UK266732

PATIENT
  Age: 34 Year
  Sex: Female

DRUGS (4)
  1. NEULASTA [Suspect]
     Indication: CHEMOTHERAPY
     Route: 065
     Dates: start: 20080213
  2. DOCETAXEL [Concomitant]
     Route: 065
     Dates: start: 20080212
  3. DOXORUBICIN HYDROCHLORIDE [Concomitant]
     Route: 065
     Dates: start: 20080212
  4. CYCLOPHOSPHAMIDE [Concomitant]
     Route: 065
     Dates: start: 20080212

REACTIONS (7)
  - CHILLS [None]
  - FEBRILE NEUTROPENIA [None]
  - NAUSEA [None]
  - ODYNOPHAGIA [None]
  - POLLAKIURIA [None]
  - PYREXIA [None]
  - VOMITING [None]
